FAERS Safety Report 14616951 (Version 1)
Quarter: 2018Q1

REPORT INFORMATION
  Report Type: Spontaneous
  Country: FR (occurrence: FR)
  Receive Date: 20180309
  Receipt Date: 20180309
  Transmission Date: 20180509
  Serious: Yes (Hospitalization)
  Sender: FDA-Public Use
  Company Number: PHHY2018FR034477

PATIENT
  Sex: Female

DRUGS (1)
  1. DIGOXIN. [Suspect]
     Active Substance: DIGOXIN
     Indication: TACHYCARDIA FOETAL
     Dosage: 0.75 MG, QD
     Route: 065

REACTIONS (9)
  - Atrioventricular block first degree [Unknown]
  - Vomiting [Unknown]
  - Toxicity to various agents [Unknown]
  - Atrioventricular block second degree [Unknown]
  - Decreased appetite [Unknown]
  - Maternal exposure during pregnancy [Unknown]
  - Weight decreased [Unknown]
  - Bradycardia [Unknown]
  - Acute kidney injury [Unknown]
